FAERS Safety Report 4328421-6 (Version None)
Quarter: 2004Q1

REPORT INFORMATION
  Report Type: 
  Country: None (occurrence: None)
  Receive Date: 20040324
  Receipt Date: 20030326
  Transmission Date: 20041129
  Serious: Yes (Hospitalization)
  Sender: FDA-Public Use
  Company Number: K200300486

PATIENT
  Age: 55 Year
  Sex: Male

DRUGS (1)
  1. ALTACE [Suspect]
     Dosage: ORAL
     Route: 048
     Dates: start: 20010101, end: 20030324

REACTIONS (2)
  - ANGIONEUROTIC OEDEMA [None]
  - DYSPNOEA [None]
